FAERS Safety Report 14823646 (Version 2)
Quarter: 2019Q3

REPORT INFORMATION
  Report Type: Report from Study
  Country: US (occurrence: US)
  Receive Date: 20180428
  Receipt Date: 20190905
  Transmission Date: 20191004
  Serious: Yes (Hospitalization)
  Sender: FDA-Public Use
  Company Number: US-VIFOR (INTERNATIONAL) INC.-VIT-2017-02440

PATIENT
  Age: 75 Year
  Sex: Male

DRUGS (27)
  1. ISOSORBIDE. [Concomitant]
     Active Substance: ISOSORBIDE
  2. LISINOPRIL. [Concomitant]
     Active Substance: LISINOPRIL
  3. ESCITALOPRAM [Concomitant]
     Active Substance: ESCITALOPRAM OXALATE
  4. ASPIRIN. [Concomitant]
     Active Substance: ASPIRIN
  5. VELTASSA [Suspect]
     Active Substance: PATIROMER
     Indication: HYPERKALAEMIA
  6. GINGKO [Concomitant]
     Active Substance: GINKGO
  7. INDOMETHACIN. [Concomitant]
     Active Substance: INDOMETHACIN
  8. ALPHA LIPOIC ACID [Concomitant]
     Active Substance: .ALPHA.-LIPOIC ACID
  9. NIACIN. [Concomitant]
     Active Substance: NIACIN
  10. METOPROLOL TARTRATE. [Concomitant]
     Active Substance: METOPROLOL TARTRATE
  11. AMLODIPINE [Concomitant]
     Active Substance: AMLODIPINE BESYLATE
  12. SODIUM BICARBONATE. [Concomitant]
     Active Substance: SODIUM BICARBONATE
  13. MECLIZINE [Concomitant]
     Active Substance: MECLIZINE HYDROCHLORIDE
  14. METHOCARBAMOL. [Concomitant]
     Active Substance: METHOCARBAMOL
  15. CRESTOR [Concomitant]
     Active Substance: ROSUVASTATIN CALCIUM
  16. RANEXA [Concomitant]
     Active Substance: RANOLAZINE
  17. ALLOPURINOL. [Concomitant]
     Active Substance: ALLOPURINOL
  18. METOPROLOL. [Concomitant]
     Active Substance: METOPROLOL
  19. AMOX/K CLAV [Concomitant]
     Active Substance: AMOXICILLIN\CLAVULANATE POTASSIUM
  20. ISOSORBIDE DINITRATE. [Concomitant]
     Active Substance: ISOSORBIDE DINITRATE
  21. VELTASSA [Suspect]
     Active Substance: PATIROMER
     Route: 048
     Dates: start: 20160915
  22. INSULIN [Concomitant]
     Active Substance: INSULIN NOS
  23. VITAMIN D3 [Concomitant]
     Active Substance: CHOLECALCIFEROL
  24. CALCITRIOL. [Concomitant]
     Active Substance: CALCITRIOL
  25. CLOPIDOGREL [Concomitant]
     Active Substance: CLOPIDOGREL BISULFATE
  26. GLYBURIDE. [Concomitant]
     Active Substance: GLYBURIDE
  27. ASA [Concomitant]
     Active Substance: ASPIRIN

REACTIONS (6)
  - Adverse drug reaction [Not Recovered/Not Resolved]
  - Rash erythematous [Unknown]
  - Constipation [Not Recovered/Not Resolved]
  - Product dose omission [Unknown]
  - Hemiparesis [Unknown]
  - Cerebrovascular accident [Not Recovered/Not Resolved]

NARRATIVE: CASE EVENT DATE: 201801
